FAERS Safety Report 8249933-9 (Version None)
Quarter: 2012Q2

REPORT INFORMATION
  Report Type: 
  Country: None (occurrence: None)
  Receive Date: 20120402
  Receipt Date: 20120323
  Transmission Date: 20120825
  Serious: Yes (Hospitalization)
  Sender: FDA-Public Use
  Company Number: US-BAYER-2012-029415

PATIENT
  Age: 29 Year
  Sex: Female

DRUGS (4)
  1. IBUPROFEN (ADVIL) [Concomitant]
     Dosage: 200MG AS NEEDED
     Route: 048
  2. HYDROCODONE BITARTRATE [Concomitant]
     Indication: PAIN
     Dosage: 7.5/500MG AS NEEDED
     Route: 048
  3. YASMIN [Suspect]
  4. KLONOPIN [Concomitant]
     Dosage: 1MG AT BEDTIME
     Route: 048

REACTIONS (1)
  - PULMONARY EMBOLISM [None]
